FAERS Safety Report 4996329-9 (Version None)
Quarter: 2006Q2

REPORT INFORMATION
  Report Type: 
  Country: None (occurrence: None)
  Receive Date: 20060505
  Receipt Date: 20060426
  Transmission Date: 20061013
  Serious: Yes (Hospitalization, Other)
  Sender: FDA-Public Use
  Company Number: 2006-02-0329

PATIENT
  Age: 67 Year
  Sex: Female
  Weight: 62 kg

DRUGS (6)
  1. PEG-INTRON [Suspect]
     Indication: HEPATITIS C
     Dosage: 100 MCG QW; SUBCUTANEOUS
     Route: 058
     Dates: start: 20060111, end: 20060124
  2. REBETOL [Suspect]
     Indication: HEPATITIS C
     Dosage: 400 MG; ORAL
     Route: 048
     Dates: start: 20060111, end: 20060124
  3. ASPENON CAPSULES [Concomitant]
  4. ESIDRI TABLETS [Concomitant]
  5. NIFEDIPINE [Concomitant]
  6. GASTROZEPIN TABLETS [Concomitant]

REACTIONS (10)
  - ATRIAL FIBRILLATION [None]
  - BLOOD ELECTROLYTES ABNORMAL [None]
  - BUNDLE BRANCH BLOCK [None]
  - DIARRHOEA [None]
  - GASTROINTESTINAL INFECTION [None]
  - HYPOCHLORAEMIA [None]
  - HYPOKALAEMIA [None]
  - HYPONATRAEMIA [None]
  - PALPITATIONS [None]
  - VOMITING [None]
